FAERS Safety Report 4557138-8 (Version None)
Quarter: 2005Q1

REPORT INFORMATION
  Report Type: 
  Country: None (occurrence: None)
  Receive Date: 20050118
  Receipt Date: 20050105
  Transmission Date: 20050727
  Serious: Yes (Hospitalization)
  Sender: FDA-Public Use
  Company Number: B0273496A

PATIENT
  Age: 23 Year
  Sex: Female

DRUGS (2)
  1. BUPROPION HYDROCHLORIDE [Suspect]
     Indication: SMOKING CESSATION THERAPY
     Dosage: ORAL
     Route: 048
     Dates: start: 20020528, end: 20020617
  2. LEVONORGESTREL [Concomitant]

REACTIONS (11)
  - ARTHRALGIA [None]
  - COAGULATION FACTOR V LEVEL DECREASED [None]
  - COAGULATION FACTOR VII LEVEL DECREASED [None]
  - FACTOR II DEFICIENCY [None]
  - INFLAMMATION [None]
  - LYMPHOCYTE COUNT DECREASED [None]
  - NEUTROPHIL COUNT INCREASED [None]
  - PROTEINURIA [None]
  - PYREXIA [None]
  - URTICARIA GENERALISED [None]
  - WHITE BLOOD CELL COUNT INCREASED [None]
